FAERS Safety Report 10070082 (Version 3)
Quarter: 2014Q2

REPORT INFORMATION
  Report Type: Spontaneous
  Country: DE (occurrence: DE)
  Receive Date: 20140410
  Receipt Date: 20140620
  Transmission Date: 20141212
  Serious: Yes (Other)
  Sender: FDA-Public Use
  Company Number: DE-AMGEN-DEUSP2014025384

PATIENT
  Age: 61 Year
  Sex: Female
  Weight: 60 kg

DRUGS (4)
  1. ENBREL [Suspect]
     Indication: RHEUMATOID ARTHRITIS
     Dosage: 50 MG, WEEKLY
     Route: 058
     Dates: start: 201304, end: 201311
  2. ENBREL [Suspect]
     Dosage: 50 MG, WEEKLY
     Route: 058
     Dates: start: 201401, end: 201403
  3. PROLIA [Concomitant]
     Indication: PRODUCT USED FOR UNKNOWN INDICATION
     Dosage: 60 MG, EVERY 6 MONTHS, SECOND DOSE ON 26FEB2014
     Route: 058
  4. PROLIA [Concomitant]
     Indication: OSTEOPOROSIS

REACTIONS (5)
  - Angiotensin converting enzyme increased [Not Recovered/Not Resolved]
  - Monocytosis [Not Recovered/Not Resolved]
  - Hilar lymphadenopathy [Unknown]
  - Leukopenia [Not Recovered/Not Resolved]
  - Sarcoidosis [Not Recovered/Not Resolved]
